FAERS Safety Report 13749454 (Version 1)
Quarter: 2017Q3

REPORT INFORMATION
  Report Type: Spontaneous
  Country: JP (occurrence: JP)
  Receive Date: 20170713
  Receipt Date: 20170713
  Transmission Date: 20171127
  Serious: Yes (Other)
  Sender: FDA-Public Use
  Company Number: PHHY2017JP101587

PATIENT
  Age: 16 Year
  Sex: Female

DRUGS (2)
  1. PAZOPANIB [Suspect]
     Active Substance: PAZOPANIB
     Indication: OSTEOSARCOMA RECURRENT
     Dosage: 800 MG, QD
     Route: 065
  2. PAZOPANIB [Suspect]
     Active Substance: PAZOPANIB
     Indication: METASTASES TO LIVER
     Dosage: 400 MG, QD
     Route: 065

REACTIONS (3)
  - Blood alkaline phosphatase increased [Unknown]
  - Anaemia [Unknown]
  - Hypothyroidism [Unknown]
